FAERS Safety Report 16667490 (Version 2)
Quarter: 2019Q3

REPORT INFORMATION
  Report Type: Spontaneous
  Country: FR (occurrence: FR)
  Receive Date: 20190805
  Receipt Date: 20190912
  Transmission Date: 20191004
  Serious: Yes (Hospitalization)
  Sender: FDA-Public Use
  Company Number: FR-BEH-2019104858

PATIENT
  Age: 6 Year
  Sex: Female
  Weight: 30 kg

DRUGS (2)
  1. PRIVIGEN [Suspect]
     Active Substance: HUMAN IMMUNOGLOBULIN G
     Indication: OPTIC NEUROPATHY
     Dosage: 15 GRAM
     Route: 042
     Dates: start: 20190323, end: 20190323
  2. PRIVIGEN [Suspect]
     Active Substance: HUMAN IMMUNOGLOBULIN G
     Dosage: 15 GRAM
     Route: 042
     Dates: start: 20190323, end: 20190323

REACTIONS (3)
  - Meningitis aseptic [Recovered/Resolved]
  - No adverse event [Unknown]
  - Product use in unapproved indication [Unknown]

NARRATIVE: CASE EVENT DATE: 20190323
